FAERS Safety Report 17665977 (Version 1)
Quarter: 2020Q2

REPORT INFORMATION
  Report Type: Report from Study
  Country: CN (occurrence: CN)
  Receive Date: 20200414
  Receipt Date: 20200414
  Transmission Date: 20200713
  Serious: Yes (Death, Other)
  Sender: FDA-Public Use
  Company Number: CN-PFIZER INC-2020151242

PATIENT
  Age: 37 Year
  Sex: Female

DRUGS (4)
  1. TIGECYCLINE. [Suspect]
     Active Substance: TIGECYCLINE
     Indication: PNEUMONIA KLEBSIELLA
     Dosage: UNK
     Dates: start: 2017
  2. MEROPENEM. [Suspect]
     Active Substance: MEROPENEM
     Indication: PNEUMONIA KLEBSIELLA
     Dosage: UNK
     Dates: start: 2017
  3. PIPERACILLIN/TAZOBACTAM [Suspect]
     Active Substance: PIPERACILLIN SODIUM\TAZOBACTAM SODIUM
     Indication: PNEUMONIA KLEBSIELLA
     Dosage: UNK
     Dates: start: 2017
  4. AVIBACTAM SODIUM/CEFTAZIDIME PENTAHYDRATE [Suspect]
     Active Substance: AVIBACTAM SODIUM\CEFTAZIDIME
     Indication: PNEUMONIA KLEBSIELLA
     Dosage: UNK
     Dates: start: 2017

REACTIONS (2)
  - Septic shock [Fatal]
  - Drug ineffective [Fatal]

NARRATIVE: CASE EVENT DATE: 2017
